FAERS Safety Report 10576139 (Version 7)
Quarter: 2018Q3

REPORT INFORMATION
  Report Type: Report from Study
  Country: US (occurrence: US)
  Receive Date: 20141111
  Receipt Date: 20180907
  Transmission Date: 20181010
  Serious: Yes (Hospitalization, Other)
  Sender: FDA-Public Use
  Company Number: US-SANOFI-AVENTIS-2013SA080321

PATIENT
  Age: 52 Year
  Sex: Female

DRUGS (5)
  1. TERIFLUNOMIDE [Suspect]
     Active Substance: TERIFLUNOMIDE
     Dosage: 14 MG,QD
     Route: 048
     Dates: start: 20130915
  2. TERIFLUNOMIDE [Suspect]
     Active Substance: TERIFLUNOMIDE
     Indication: MULTIPLE SCLEROSIS
     Dosage: 14 MG,QD
     Route: 048
     Dates: start: 20130801, end: 20130816
  3. FLUOXETINE [Concomitant]
     Active Substance: FLUOXETINE HYDROCHLORIDE
     Dosage: UNK
  4. TERIFLUNOMIDE [Suspect]
     Active Substance: TERIFLUNOMIDE
     Dosage: 14 MG,QD
     Route: 048
     Dates: start: 20130801, end: 20130816
  5. FLUOXETINE [Concomitant]
     Active Substance: FLUOXETINE HYDROCHLORIDE
     Dosage: DOSE INCREASED

REACTIONS (31)
  - Seizure [Unknown]
  - Pain in extremity [Recovered/Resolved]
  - Weight increased [Unknown]
  - Depressed mood [Unknown]
  - Discomfort [Recovered/Resolved]
  - Bedridden [Recovering/Resolving]
  - Intervertebral disc protrusion [Unknown]
  - Vision blurred [Unknown]
  - Memory impairment [Unknown]
  - Stress [Unknown]
  - Abdominal pain upper [Unknown]
  - Tooth loss [Not Recovered/Not Resolved]
  - Constipation [Unknown]
  - Cystitis [Unknown]
  - Alopecia [Unknown]
  - Nausea [Recovering/Resolving]
  - Limb discomfort [Recovered/Resolved]
  - Fatigue [Unknown]
  - Hypersomnia [Unknown]
  - Nephrolithiasis [Unknown]
  - Multiple sclerosis relapse [Recovered/Resolved]
  - Balance disorder [Recovered/Resolved]
  - Gait disturbance [Recovered/Resolved]
  - Malaise [Recovered/Resolved]
  - Movement disorder [Recovering/Resolving]
  - Porphyria [Unknown]
  - Muscle spasms [Recovered/Resolved]
  - White matter lesion [Unknown]
  - Eye disorder [Not Recovered/Not Resolved]
  - Migraine [Unknown]
  - Chest injury [Unknown]
